FAERS Safety Report 7277994-2 (Version None)
Quarter: 2011Q1

REPORT INFORMATION
  Report Type: 
  Country: None (occurrence: None)
  Receive Date: 20110207
  Receipt Date: 20110125
  Transmission Date: 20110831
  Serious: Yes (Hospitalization)
  Sender: FDA-Public Use
  Company Number: PHHY2011SI06427

PATIENT
  Sex: Male
  Weight: 59 kg

DRUGS (5)
  1. LANITOP [Concomitant]
     Indication: ATRIAL FIBRILLATION
     Dosage: 0.1 MG, UNK
     Route: 048
  2. LEKOPTIN [Suspect]
     Indication: ATRIAL FIBRILLATION
     Dosage: 80 MG, Q8H
     Route: 048
     Dates: start: 20070101
  3. TRITACE [Concomitant]
     Indication: HYPERTENSION
     Dosage: 5 MG, QD
     Route: 048
  4. ASPIRIN [Concomitant]
     Indication: ATRIAL FIBRILLATION
     Dosage: 1 DF/DAY
     Route: 048
  5. TULIP (ATORVASTATIN) [Concomitant]
     Dosage: 10 MG, QD
     Route: 048

REACTIONS (2)
  - ASTHENIA [None]
  - LOSS OF CONSCIOUSNESS [None]
